FAERS Safety Report 5145461-8 (Version None)
Quarter: 2006Q4

REPORT INFORMATION
  Report Type: 
  Country: None (occurrence: None)
  Receive Date: 20061026
  Receipt Date: 20061016
  Transmission Date: 20070319
  Serious: Yes (Hospitalization)
  Sender: FDA-Public Use
  Company Number: 200610725

PATIENT
  Age: 43 Year
  Sex: Female
  Weight: 57.6068 kg

DRUGS (2)
  1. VIVAGLOBIN [Suspect]
     Indication: IMMUNODEFICIENCY COMMON VARIABLE
     Dosage: 10 ML DAILY SC; 20 ML DAILY SC
     Route: 058
     Dates: start: 20060918, end: 20060918
  2. VIVAGLOBIN [Suspect]

REACTIONS (9)
  - AGITATION [None]
  - ANXIETY [None]
  - CONVULSION [None]
  - COUGH [None]
  - INJECTION SITE ERYTHEMA [None]
  - LIVER FUNCTION TEST ABNORMAL [None]
  - MIGRAINE [None]
  - NAUSEA [None]
  - VOMITING [None]
